FAERS Safety Report 7844366 (Version 2)
Quarter: 2013Q3

REPORT INFORMATION
  Report Type: Report from Study
  Country: US (occurrence: US)
  Receive Date: 20110307
  Receipt Date: 20130826
  Transmission Date: 20140515
  Serious: Yes (Hospitalization)
  Sender: FDA-Public Use
  Company Number: PHHO2011US03799

PATIENT
  Age: 40 Year
  Sex: Female
  Weight: 61 kg

DRUGS (7)
  1. GILENYA [Suspect]
     Indication: RELAPSING-REMITTING MULTIPLE SCLEROSIS
     Dosage: CODE NOT BROKEN
     Route: 048
     Dates: start: 20090203, end: 20110219
  2. GILENYA [Suspect]
     Dosage: 0.5 MG, QD
     Route: 048
     Dates: start: 20110224
  3. INDERAL LA [Suspect]
     Indication: TREMOR
     Dosage: 80 MG, QD
     Route: 048
     Dates: start: 2003, end: 20110224
  4. NEURONTIN [Concomitant]
  5. VALIUM [Concomitant]
  6. MULTIVITAMINS [Concomitant]
  7. AMANTADINE [Concomitant]

REACTIONS (2)
  - Orthostatic hypotension [Recovering/Resolving]
  - Dizziness [Recovering/Resolving]
